FAERS Safety Report 7033691-X (Version None)
Quarter: 2010Q4

REPORT INFORMATION
  Report Type: 
  Country: None (occurrence: None)
  Receive Date: 20101005
  Receipt Date: 20100913
  Transmission Date: 20110411
  Serious: Yes (Life-Threatening, Hospitalization)
  Sender: FDA-Public Use
  Company Number: 1000015873

PATIENT
  Age: 65 Year
  Sex: Female
  Weight: 86.81 kg

DRUGS (15)
  1. MILNACIPRAN (MILNACIPARN HYDROCHLORIDE) [Suspect]
     Indication: FIBROMYALGIA
     Dosage: 100 MG (50 MG, 2 IN 1 D), ORAL 75 MG (75 MG, QAM), ORAL 50 MG (50 MG, QPM), ORAL
     Route: 048
     Dates: start: 20100810, end: 20100816
  2. MILNACIPRAN (MILNACIPARN HYDROCHLORIDE) [Suspect]
     Indication: FIBROMYALGIA
     Dosage: 100 MG (50 MG, 2 IN 1 D), ORAL 75 MG (75 MG, QAM), ORAL 50 MG (50 MG, QPM), ORAL
     Route: 048
     Dates: start: 20100817, end: 20100819
  3. MILNACIPRAN (MILNACIPARN HYDROCHLORIDE) [Suspect]
     Indication: FIBROMYALGIA
     Dosage: 100 MG (50 MG, 2 IN 1 D), ORAL 75 MG (75 MG, QAM), ORAL 50 MG (50 MG, QPM), ORAL
     Route: 048
     Dates: start: 20100817, end: 20100819
  4. DULOXETINE HYDROCHLORIDE [Suspect]
     Indication: FIBROMYALGIA
     Dosage: 60 MG (60 MG, 1 IN 1 D), ORAL
     Route: 048
     Dates: start: 20100501, end: 20100809
  5. BYETTA [Concomitant]
  6. METFORMIN [Concomitant]
  7. LISINOPRIL [Concomitant]
  8. HYDROCHLOROTHIAZIDE [Concomitant]
  9. SIMVASTATIN [Concomitant]
  10. TRILIPIX [Concomitant]
  11. LOPRESSOR [Concomitant]
  12. AMBIEN [Concomitant]
  13. VICODIN [Concomitant]
  14. CALCIUM WITH VITAMIN D(TABLETS) [Concomitant]
  15. TYLENOL (CAPLET) [Concomitant]

REACTIONS (9)
  - ANXIETY [None]
  - BLOOD CREATININE INCREASED [None]
  - BLOOD UREA INCREASED [None]
  - DEPRESSION [None]
  - DRUG HYPERSENSITIVITY [None]
  - INTERNATIONAL NORMALISED RATIO DECREASED [None]
  - TACHYCARDIA [None]
  - TACHYPNOEA [None]
  - WHITE BLOOD CELL COUNT INCREASED [None]
